FAERS Safety Report 23399168 (Version 1)
Quarter: 2024Q1

REPORT INFORMATION
  Report Type: Spontaneous
  Country: US (occurrence: US)
  Receive Date: 20240113
  Receipt Date: 20240113
  Transmission Date: 20240409
  Serious: Yes (Death, Hospitalization, Other)
  Sender: FDA-Public Use
  Company Number: US-AMGEN-USASP2024002521

PATIENT

DRUGS (16)
  1. RITUXIMAB [Suspect]
     Active Substance: RITUXIMAB
     Indication: Transplant rejection
     Dosage: UNK
     Route: 065
  2. FILGRASTIM [Suspect]
     Active Substance: FILGRASTIM
     Indication: Neutropenia
     Dosage: UNK
     Route: 065
  3. TACROLIMUS [Concomitant]
     Active Substance: TACROLIMUS
     Indication: Immunosuppression
     Dosage: 0.1 MILLIGRAM/KG QD
     Route: 048
  4. THYMOGLOBULIN [Concomitant]
     Active Substance: LAPINE T-LYMPHOCYTE IMMUNE GLOBULIN
     Indication: Immunosuppression
     Dosage: 1.5 MILLIGRAM/KG (5-D)
     Route: 042
  5. THYMOGLOBULIN [Concomitant]
     Active Substance: LAPINE T-LYMPHOCYTE IMMUNE GLOBULIN
     Dosage: 0.2 MILLIGRAM/KG
     Route: 042
  6. METHYLPREDNISOLONE [Concomitant]
     Active Substance: METHYLPREDNISOLONE
     Indication: Immunosuppression
     Dosage: 2 MILLIGRAM/KG
     Route: 042
  7. METHYLPREDNISOLONE [Concomitant]
     Active Substance: METHYLPREDNISOLONE
     Indication: Transplant dysfunction
  8. MYCOPHENOLATE MOFETIL [Concomitant]
     Active Substance: MYCOPHENOLATE MOFETIL
     Indication: Immunosuppression
     Dosage: 600 MILLIGRAM/M^2 QD
     Route: 065
  9. PREDNISONE [Concomitant]
     Active Substance: PREDNISONE
     Indication: Transplant rejection
     Dosage: UNK (FOR 3 D)
     Route: 048
  10. Immunoglobulin [Concomitant]
     Dosage: UNK
     Route: 042
  11. BORTEZOMIB [Concomitant]
     Active Substance: BORTEZOMIB
     Dosage: UNK
     Route: 065
  12. GANCICLOVIR [Concomitant]
     Active Substance: GANCICLOVIR
     Indication: Cytomegalovirus infection
     Dosage: UNK
     Route: 042
  13. VALGANCICLOVIR [Concomitant]
     Active Substance: VALGANCICLOVIR
     Indication: Cytomegalovirus infection
     Dosage: UNK (FOR 3 MONTHS)
     Route: 048
  14. NYSTATIN [Concomitant]
     Active Substance: NYSTATIN
     Indication: Candida infection
     Dosage: UNK (FOR 3 MONTHS)
     Route: 048
  15. CLOTRIMAZOLE [Concomitant]
     Active Substance: CLOTRIMAZOLE
     Indication: Candida infection
     Dosage: UNK (FOR 3 MONTHS)
     Route: 065
  16. SULFAMETHOXAZOLE\TRIMETHOPRIM [Concomitant]
     Active Substance: SULFAMETHOXAZOLE\TRIMETHOPRIM
     Indication: Pneumocystis jirovecii infection
     Dosage: UNK (FOR 6 MONTHS)
     Route: 065

REACTIONS (21)
  - Sudden death [Fatal]
  - Pulmonary vascular disorder [Fatal]
  - Transplant rejection [Fatal]
  - Post transplant lymphoproliferative disorder [Fatal]
  - Complications of transplanted heart [Fatal]
  - Influenza [Fatal]
  - Multiple organ dysfunction syndrome [Fatal]
  - Protein-losing gastroenteropathy [Unknown]
  - New onset diabetes after transplantation [Unknown]
  - Heart transplant rejection [Unknown]
  - Transplant dysfunction [Unknown]
  - Epstein-Barr virus associated lymphoproliferative disorder [Unknown]
  - Respiratory syncytial virus infection [Unknown]
  - Renal impairment [Unknown]
  - Neutropenia [Unknown]
  - Varicella zoster virus infection [Unknown]
  - Bacterial infection [Unknown]
  - Cytomegalovirus infection [Unknown]
  - Donor specific antibody present [Unknown]
  - Haemodynamic instability [Unknown]
  - Off label use [Unknown]
